FAERS Safety Report 16725342 (Version 1)
Quarter: 2019Q4

REPORT INFORMATION
  Report Type: Spontaneous
  Country: US (occurrence: US)
  Receive Date: 20190820
  Receipt Date: 20190820
  Transmission Date: 20200122
  Serious: Yes (Hospitalization)
  Sender: FDA-Public Use
  Company Number: None

PATIENT
  Age: 60 Year
  Sex: Female

DRUGS (2)
  1. REPATHA [Suspect]
     Active Substance: EVOLOCUMAB
     Indication: HYPERCHOLESTEROLAEMIA
     Dosage: ?          OTHER FREQUENCY:EVERTY OTHER WEEK;?
     Route: 058
     Dates: start: 20190628
  2. NOVOLIN [Concomitant]
     Active Substance: INSULIN HUMAN
     Dates: start: 20190812

REACTIONS (2)
  - Therapy cessation [None]
  - Blood glucose decreased [None]
